FAERS Safety Report 6544167-8 (Version None)
Quarter: 2010Q1

REPORT INFORMATION
  Report Type: 
  Country: None (occurrence: None)
  Receive Date: 20100120
  Receipt Date: 20090403
  Transmission Date: 20100710
  Serious: No
  Sender: FDA-Public Use
  Company Number: US-ALLERGAN-0904610US

PATIENT
  Sex: Male

DRUGS (1)
  1. PRED FORTE [Suspect]
     Indication: UVEITIS
     Dosage: 1 GTT, Q4HR
     Route: 047

REACTIONS (1)
  - EYE PAIN [None]
